FAERS Safety Report 17819321 (Version 2)
Quarter: 2025Q4

REPORT INFORMATION
  Report Type: Spontaneous
  Country: US (occurrence: US)
  Receive Date: 20200523
  Receipt Date: 20251008
  Transmission Date: 20260118
  Serious: Yes (Other)
  Sender: TEVA
  Company Number: TEVA-US-15MAY2020-20669

PATIENT
  Age: 57 Year
  Sex: Female

DRUGS (2)
  1. TRAMADOL [Suspect]
     Active Substance: TRAMADOL
     Indication: Osteoarthritis
     Route: 065
  2. TRAZODONE [Suspect]
     Active Substance: TRAZODONE HYDROCHLORIDE
     Indication: Product used for unknown indication
     Dosage: DOSAGE TEXT: ONE OR TWO TABLETS UP TO FOUR TIMES PER DAY
     Route: 065

REACTIONS (29)
  - Loss of consciousness [Not Recovered/Not Resolved]
  - White matter lesion [Not Recovered/Not Resolved]
  - Haemorrhagic diathesis [Unknown]
  - Uterine atrophy [Unknown]
  - Burn of internal organs [Recovering/Resolving]
  - Hiatus hernia [Unknown]
  - Blindness [Unknown]
  - Depression [Unknown]
  - Sleep disorder [Unknown]
  - Cardiac disorder [Unknown]
  - Angina pectoris [Unknown]
  - Bone development abnormal [Not Recovered/Not Resolved]
  - Renal disorder [Unknown]
  - Nephrolithiasis [Unknown]
  - Drug detoxification [Unknown]
  - Frustration tolerance decreased [Unknown]
  - Serum serotonin increased [Unknown]
  - Feeling abnormal [Unknown]
  - Adverse reaction [Unknown]
  - Serotonin syndrome [Unknown]
  - Somnambulism [Not Recovered/Not Resolved]
  - Product dispensing error [Unknown]
  - Wrong product administered [Unknown]
  - Fear [Unknown]
  - Heart rate increased [Not Recovered/Not Resolved]
  - Personality disorder [Not Recovered/Not Resolved]
  - Dysarthria [Not Recovered/Not Resolved]
  - Skin exfoliation [Unknown]
  - Atrophy [Unknown]
